FAERS Safety Report 5201724-9 (Version None)
Quarter: 2007Q1

REPORT INFORMATION
  Report Type: 
  Country: None (occurrence: None)
  Receive Date: 20070104
  Receipt Date: 20061222
  Transmission Date: 20070707
  Serious: Yes (Death, Other)
  Sender: FDA-Public Use
  Company Number: 2006JP000749

PATIENT
  Age: 57 Year
  Sex: Female
  Weight: 70 kg

DRUGS (10)
  1. PROGRAF [Suspect]
     Indication: RHEUMATOID ARTHRITIS
     Dosage: SEE IMAGE
     Route: 048
     Dates: start: 20050708, end: 20051101
  2. PROGRAF [Suspect]
     Indication: RHEUMATOID ARTHRITIS
     Dosage: SEE IMAGE
     Route: 048
     Dates: start: 20051118, end: 20051204
  3. PROGRAF [Suspect]
     Indication: RHEUMATOID ARTHRITIS
     Dosage: SEE IMAGE
     Route: 048
     Dates: start: 20051205, end: 20060301
  4. LOKIFLAN (LOXOPROFEN SODIUM) TABLET [Suspect]
     Indication: RHEUMATOID ARTHRITIS
     Dosage: 60 MG, BID, ORAL
     Route: 048
     Dates: start: 20020401, end: 20060303
  5. MEDROL [Concomitant]
  6. PREDNISOLONE [Concomitant]
  7. MUCOSTA (REBAMIPIDE) [Concomitant]
  8. RISEDRONATE SODIUM [Concomitant]
  9. CLARITIN [Concomitant]
  10. VOGLIBOSE [Concomitant]

REACTIONS (11)
  - ACUTE PULMONARY OEDEMA [None]
  - ACUTE RESPIRATORY FAILURE [None]
  - CARDIOTOXICITY [None]
  - CONDITION AGGRAVATED [None]
  - DIABETES MELLITUS [None]
  - HEART RATE INCREASED [None]
  - INTERSTITIAL LUNG DISEASE [None]
  - LYMPHANGIOSIS CARCINOMATOSA [None]
  - NASOPHARYNGITIS [None]
  - NO THERAPEUTIC RESPONSE [None]
  - RIGHT VENTRICULAR FAILURE [None]
